FAERS Safety Report 4542951-3 (Version None)
Quarter: 2004Q4

REPORT INFORMATION
  Report Type: 
  Country: None (occurrence: None)
  Receive Date: 20041229
  Receipt Date: 20041210
  Transmission Date: 20050328
  Serious: Yes (Death)
  Sender: FDA-Public Use
  Company Number: 2004S1000276

PATIENT
  Age: 27 Year
  Sex: Female
  Weight: 61.36 kg

DRUGS (1)
  1. CUBICIN [Suspect]
     Dosage: 4 MG/KG;Q24H;IV
     Route: 042
     Dates: start: 20041210, end: 20041210

REACTIONS (2)
  - CONDITION AGGRAVATED [None]
  - SEPTIC SHOCK [None]
